FAERS Safety Report 6231821-0 (Version None)
Quarter: 2009Q2

REPORT INFORMATION
  Report Type: 
  Country: None (occurrence: None)
  Receive Date: 20090616
  Receipt Date: 20090608
  Transmission Date: 20091009
  Serious: Yes (Hospitalization, Other)
  Sender: FDA-Public Use
  Company Number: US-ABBOTT-09P-163-0578668-00

PATIENT
  Sex: Female

DRUGS (10)
  1. HUMIRA [Suspect]
     Indication: PSORIATIC ARTHROPATHY
     Route: 058
     Dates: start: 20090608
  2. HUMIRA [Suspect]
     Route: 058
     Dates: start: 20090101, end: 20090430
  3. HUMIRA [Suspect]
     Route: 058
     Dates: start: 20070101, end: 20090101
  4. LISINOPRIL [Concomitant]
     Indication: HYPERTENSION
  5. LASIX [Concomitant]
     Indication: FLUID RETENTION
  6. POTASSIUM CHLORIDE [Concomitant]
     Indication: DRUG USE FOR UNKNOWN INDICATION
  7. CALCIUM [Concomitant]
     Indication: DRUG USE FOR UNKNOWN INDICATION
  8. VITAMIN D [Concomitant]
     Indication: DRUG USE FOR UNKNOWN INDICATION
  9. TRAMADOL HCL [Concomitant]
     Indication: ARTHRALGIA
  10. UNKNOWN INHALER [Concomitant]
     Indication: ASTHMA
     Route: 055

REACTIONS (10)
  - ARTHRALGIA [None]
  - BREAKTHROUGH PAIN [None]
  - BREAST PAIN [None]
  - DYSPEPSIA [None]
  - DYSSTASIA [None]
  - MOBILITY DECREASED [None]
  - NAUSEA [None]
  - NECK PAIN [None]
  - PAIN IN EXTREMITY [None]
  - PANCREATITIS [None]
